FAERS Safety Report 7759432-6 (Version None)
Quarter: 2011Q3

REPORT INFORMATION
  Report Type: 
  Country: None (occurrence: None)
  Receive Date: 20110919
  Receipt Date: 20110822
  Transmission Date: 20111222
  Serious: Yes (Other)
  Sender: FDA-Public Use
  Company Number: CA-ROCHE-789717

PATIENT
  Sex: Female

DRUGS (1)
  1. ACTEMRA [Suspect]
     Indication: RHEUMATOID ARTHRITIS
     Dosage: INDICATION: SERO-POSITIVE NODULAR RA
     Route: 065
     Dates: start: 20110301, end: 20110701

REACTIONS (2)
  - PSORIASIS [None]
  - HAEMOGLOBIN DECREASED [None]
